FAERS Safety Report 5699096-9 (Version None)
Quarter: 2008Q2

REPORT INFORMATION
  Report Type: 
  Country: None (occurrence: None)
  Receive Date: 20080401
  Receipt Date: 20070925
  Transmission Date: 20081010
  Serious: Yes (Other)
  Sender: FDA-Public Use
  Company Number: HQWYE346027SEP07

PATIENT
  Age: 66 Year
  Sex: Female
  Weight: 90.8 kg

DRUGS (7)
  1. INDERAL LA [Suspect]
     Indication: ARRHYTHMIA
     Dosage: 60 MG 2X PER 1 DAY, ORAL
     Route: 048
  2. CELEBREX [Concomitant]
  3. POTASSIUM CHLORIDE [Concomitant]
  4. FIORINAL [Concomitant]
  5. PRANDIN [Concomitant]
  6. HYDROCHLOROTHIAZIDE (HYDROCHLORTHIAZIDE) [Concomitant]
  7. NEURONTIN [Concomitant]

REACTIONS (1)
  - PALPITATIONS [None]
